FAERS Safety Report 15518373 (Version 1)
Quarter: 2018Q4

REPORT INFORMATION
  Report Type: Spontaneous
  Country: DK (occurrence: DK)
  Receive Date: 20181017
  Receipt Date: 20181017
  Transmission Date: 20190205
  Serious: Yes (Life-Threatening, Hospitalization, Disabling, Other)
  Sender: FDA-Public Use
  Company Number: DK-MYLANLABS-2018M1077629

PATIENT
  Age: 72 Year
  Sex: Male

DRUGS (6)
  1. ISOPTIN [Concomitant]
     Active Substance: VERAPAMIL HYDROCHLORIDE
     Indication: THROMBOSIS PROPHYLAXIS
     Dosage: STYRKE: 240 MG.
     Route: 048
  2. LOSARTANKALIUM/HYDROCHLOORTHIAZIDE [Concomitant]
     Indication: HYPERTENSION
     Dosage: 1 DF, QD (STYRKE: 50+12,5 MG.)
     Route: 048
     Dates: start: 20141121
  3. ELIQUIS [Suspect]
     Active Substance: APIXABAN
     Indication: ANTICOAGULANT THERAPY
     Dosage: STYRKE: 2,5 MG
     Route: 048
     Dates: start: 20151105, end: 20151111
  4. GABAPENTIN. [Concomitant]
     Active Substance: GABAPENTIN
     Indication: PRODUCT USED FOR UNKNOWN INDICATION
     Dosage: UNK
  5. OXCARBAZEPINE. [Concomitant]
     Active Substance: OXCARBAZEPINE
     Indication: PRODUCT USED FOR UNKNOWN INDICATION
     Dosage: UNK
  6. ATORVASTATIN [Suspect]
     Active Substance: ATORVASTATIN
     Indication: HYPERCHOLESTEROLAEMIA
     Dosage: 20 MG, QD (STYRKE: 20MG)
     Dates: start: 20151105

REACTIONS (12)
  - Aphasia [Recovered/Resolved]
  - Quadrantanopia [Not Recovered/Not Resolved]
  - Poor quality sleep [Recovered/Resolved]
  - Haemorrhage intracranial [Recovered/Resolved with Sequelae]
  - Neurologic neglect syndrome [Recovering/Resolving]
  - Gait disturbance [Recovered/Resolved]
  - Visual impairment [Not Recovered/Not Resolved]
  - Coordination abnormal [Recovered/Resolved]
  - Malaise [Recovered/Resolved]
  - Diplopia [Recovering/Resolving]
  - Hemiparesis [Recovered/Resolved]
  - Cognitive disorder [Not Recovered/Not Resolved]

NARRATIVE: CASE EVENT DATE: 20151109
